FAERS Safety Report 21366557 (Version 5)
Quarter: 2023Q2

REPORT INFORMATION
  Report Type: Report from Study
  Country: US (occurrence: US)
  Receive Date: 20220923
  Receipt Date: 20230613
  Transmission Date: 20230722
  Serious: Yes (Disabling, Other)
  Sender: FDA-Public Use
  Company Number: US-ABBVIE-4128520

PATIENT
  Sex: Female

DRUGS (5)
  1. VENCLEXTA [Suspect]
     Active Substance: VENETOCLAX
     Indication: Chronic lymphocytic leukaemia
     Dosage: THERAPY END IN 2022
     Route: 048
     Dates: start: 202205
  2. VENCLEXTA [Suspect]
     Active Substance: VENETOCLAX
     Indication: Chronic lymphocytic leukaemia
     Dosage: START IN 2022
     Route: 048
  3. GAZYVA [Concomitant]
     Active Substance: OBINUTUZUMAB
     Indication: Product used for unknown indication
  4. ZARXIO [Suspect]
     Active Substance: FILGRASTIM-SNDZ
     Indication: Product used for unknown indication
     Route: 065
  5. COLCHICINE [Concomitant]
     Active Substance: COLCHICINE
     Indication: Gout

REACTIONS (18)
  - Cataract [Unknown]
  - Hypophagia [Unknown]
  - Joint swelling [Unknown]
  - Corneal oedema [Unknown]
  - Blindness [Unknown]
  - Diarrhoea [Unknown]
  - Gout [Unknown]
  - Toothache [Recovering/Resolving]
  - Oral pain [Unknown]
  - White blood cell count decreased [Unknown]
  - Myalgia [Recovering/Resolving]
  - Arthritis [Unknown]
  - Pain [Recovering/Resolving]
  - Onychalgia [Recovering/Resolving]
  - Bone pain [Recovering/Resolving]
  - Mobility decreased [Recovering/Resolving]
  - Pain in extremity [Unknown]
  - Drug hypersensitivity [Unknown]

NARRATIVE: CASE EVENT DATE: 20220101
